FAERS Safety Report 24023088 (Version 2)
Quarter: 2024Q2

REPORT INFORMATION
  Report Type: Report from Study
  Country: IT (occurrence: IT)
  Receive Date: 20240627
  Receipt Date: 20240627
  Transmission Date: 20240715
  Serious: No
  Sender: FDA-Public Use
  Company Number: IT-ROCHE-3469533

PATIENT
  Age: 67 Year
  Sex: Female
  Weight: 64.0 kg

DRUGS (14)
  1. ALECTINIB [Suspect]
     Active Substance: ALECTINIB
     Indication: Non-small cell lung cancer
     Route: 048
     Dates: start: 20221130
  2. FUROSEMIDE [Concomitant]
     Active Substance: FUROSEMIDE
  3. CEDRAVIS [Concomitant]
  4. ACETAMINOPHEN [Concomitant]
     Active Substance: ACETAMINOPHEN
  5. ACETAMINOPHEN\CODEINE PHOSPHATE [Concomitant]
     Active Substance: ACETAMINOPHEN\CODEINE PHOSPHATE
  6. FOLIC ACID [Concomitant]
     Active Substance: FOLIC ACID
  7. DOBETIN [Concomitant]
  8. OMEPRAZOLE [Concomitant]
     Active Substance: DONEPEZIL HYDROCHLORIDE\OMEPRAZOLE\OMEPRAZOLE MAGNESIUM
  9. MYCOSTATIN [Concomitant]
     Active Substance: NYSTATIN
  10. TWICE [Concomitant]
  11. MORPHINE SULFATE [Concomitant]
     Active Substance: MORPHINE SULFATE
  12. CARBOPLATIN [Concomitant]
     Active Substance: CARBOPLATIN
  13. PEMETREXED [Concomitant]
     Active Substance: PEMETREXED
  14. PEMBROLIZUMAB [Concomitant]
     Active Substance: PEMBROLIZUMAB

REACTIONS (1)
  - Thrombosis [Not Recovered/Not Resolved]

NARRATIVE: CASE EVENT DATE: 20230424
